FAERS Safety Report 21349974 (Version 1)
Quarter: 2022Q3

REPORT INFORMATION
  Report Type: Spontaneous
  Country: US (occurrence: None)
  Receive Date: 20220918
  Receipt Date: 20220918
  Transmission Date: 20221027
  Serious: Yes (Life-Threatening, Hospitalization, Disabling, Other)
  Sender: FDA-Public Use
  Company Number: None

PATIENT
  Age: 32 Year
  Sex: Female
  Weight: 90.9 kg

DRUGS (4)
  1. NEXPLANON [Suspect]
     Active Substance: ETONOGESTREL
     Indication: Menstrual disorder
     Dosage: OTHER QUANTITY : 1 IMPLANT;?OTHER FREQUENCY : EVERY 3 YEARS;?
     Route: 058
     Dates: start: 20210922, end: 20220719
  2. EFFEXOR [Concomitant]
     Active Substance: VENLAFAXINE HYDROCHLORIDE
  3. TRAZODONE [Concomitant]
     Active Substance: TRAZODONE HYDROCHLORIDE
  4. MODAFINIL [Concomitant]
     Active Substance: MODAFINIL

REACTIONS (2)
  - Ovarian cyst ruptured [None]
  - Complication of device removal [None]

NARRATIVE: CASE EVENT DATE: 20220901
